FAERS Safety Report 5038119-7 (Version None)
Quarter: 2006Q2

REPORT INFORMATION
  Report Type: 
  Country: None (occurrence: None)
  Receive Date: 20060622
  Receipt Date: 20060609
  Transmission Date: 20061013
  Serious: Yes (Hospitalization)
  Sender: FDA-Public Use
  Company Number: 2006074462

PATIENT
  Age: 62 Year
  Sex: Female

DRUGS (3)
  1. CLINDAMYCIN HCL [Suspect]
     Indication: PUSTULAR PSORIASIS
     Dosage: ORAL
     Route: 048
     Dates: start: 20060324, end: 20060329
  2. NEOTIGASON            (ACITRETIN) [Concomitant]
  3. METHOTREXATE [Concomitant]

REACTIONS (8)
  - ASTHENIA [None]
  - BLOOD PRESSURE SYSTOLIC DECREASED [None]
  - DEHYDRATION [None]
  - DERMATITIS EXFOLIATIVE [None]
  - DIZZINESS [None]
  - PSORIASIS [None]
  - PYREXIA [None]
  - TOXIC EPIDERMAL NECROLYSIS [None]
